FAERS Safety Report 16812816 (Version 1)
Quarter: 2019Q3

REPORT INFORMATION
  Report Type: Spontaneous
  Country: FR (occurrence: FR)
  Receive Date: 20190916
  Receipt Date: 20190916
  Transmission Date: 20191005
  Serious: Yes (Other)
  Sender: FDA-Public Use
  Company Number: FR-JAZZ-2019-FR-005469

PATIENT

DRUGS (3)
  1. METHOTREXATE. [Concomitant]
     Active Substance: METHOTREXATE
     Indication: PRODUCT USED FOR UNKNOWN INDICATION
     Dosage: UNK
  2. NILOTINIB HYDROCHLORIDE MONOHYDRATE [Concomitant]
     Active Substance: NILOTINIB HYDROCHLORIDE MONOHYDRATE
     Indication: PRODUCT USED FOR UNKNOWN INDICATION
     Dosage: UNK
  3. ASPARAGINASE [Suspect]
     Active Substance: ASPARAGINASE
     Indication: CHEMOTHERAPY
     Dosage: UNKNOWN DOSE
     Route: 042
     Dates: start: 20160112, end: 20160112

REACTIONS (1)
  - Hypersensitivity [Recovered/Resolved]

NARRATIVE: CASE EVENT DATE: 20160112
